FAERS Safety Report 11135424 (Version 2)
Quarter: 2015Q3

REPORT INFORMATION
  Report Type: Spontaneous
  Country: US (occurrence: None)
  Receive Date: 20150521
  Receipt Date: 20150902
  Transmission Date: 20151125
  Serious: Yes (Death, Life-Threatening, Hospitalization, Other)
  Sender: FDA-Public Use
  Company Number: PIN-2015-00021

PATIENT
  Age: 62 Year
  Sex: Male
  Weight: 94.3 kg

DRUGS (9)
  1. VITAMIN B COMPLEX [Concomitant]
     Active Substance: CYANOCOBALAMIN\DEXPANTHENOL\NIACINAMIDE\PYRIDOXINE HYDROCHLORIDE\RIBOFLAVIN 5^-PHOSPHATE SODIUM\THIAMINE HYDROCHLORIDE\VITAMIN B COMPLEX
  2. PROCHLORPERAZINE (PROCHLORPERAZINE) [Concomitant]
     Active Substance: PROCHLORPERAZINE
  3. DEXAMETHASONE (DEXAMETHASONE) [Concomitant]
     Active Substance: DEXAMETHASONE
  4. COLACE (DOCUASTE SODIUM) [Concomitant]
  5. VYTORIN (SIMVASTATIN, EZETIMIBE) [Concomitant]
  6. LOSARTAN POTASSIUM (LOSARTAN POTASSIUM) [Concomitant]
     Active Substance: LOSARTAN POTASSIUM
  7. PREDNISONE (PREDNISONE) [Concomitant]
     Active Substance: PREDNISONE
  8. FOLIC ACID (FOLIC ACID) [Concomitant]
     Active Substance: FOLIC ACID
  9. PHOTOFRIN [Suspect]
     Active Substance: PORFIMER SODIUM
     Indication: PLEURAL MESOTHELIOMA MALIGNANT
     Route: 042
     Dates: start: 20140922, end: 20140922

REACTIONS (29)
  - Acute respiratory distress syndrome [None]
  - Hypotension [None]
  - Respiratory distress [None]
  - Abdominal distension [None]
  - Subclavian vein thrombosis [None]
  - Septic shock [None]
  - Atrial fibrillation [None]
  - Disease progression [None]
  - Pyrexia [None]
  - Rib fracture [None]
  - Deep vein thrombosis [None]
  - Pneumonia [None]
  - Urine odour abnormal [None]
  - Pleural mesothelioma [None]
  - Respiratory failure [None]
  - Sepsis [None]
  - Fatigue [None]
  - Atrial flutter [None]
  - Dysuria [None]
  - Malignant neoplasm progression [None]
  - Eye infection staphylococcal [None]
  - Dehydration [None]
  - Pulmonary oedema [None]
  - Fall [None]
  - Dyspnoea [None]
  - Peripheral artery thrombosis [None]
  - Oedema peripheral [None]
  - Nausea [None]
  - Decreased appetite [None]

NARRATIVE: CASE EVENT DATE: 20150207
